FAERS Safety Report 21323852 (Version 1)
Quarter: 2022Q3

REPORT INFORMATION
  Report Type: Report from Study
  Country: NL (occurrence: NL)
  Receive Date: 20220912
  Receipt Date: 20220912
  Transmission Date: 20221027
  Serious: Yes (Death, Hospitalization)
  Sender: FDA-Public Use
  Company Number: NL-PFIZER INC-PV202200007475

PATIENT
  Age: 75 Year
  Sex: Female

DRUGS (1)
  1. CRIZOTINIB [Suspect]
     Active Substance: CRIZOTINIB
     Indication: Squamous cell carcinoma of lung
     Dosage: 250 MG, 1X/DAY
     Route: 048
     Dates: start: 20210603, end: 20220608

REACTIONS (1)
  - Arthritis bacterial [Fatal]

NARRATIVE: CASE EVENT DATE: 20220614
